FAERS Safety Report 6726132-0 (Version None)
Quarter: 2010Q2

REPORT INFORMATION
  Report Type: 
  Country: None (occurrence: None)
  Receive Date: 20100514
  Receipt Date: 20100511
  Transmission Date: 20101027
  Serious: Yes (Death, Other)
  Sender: FDA-Public Use
  Company Number: US-BRISTOL-MYERS SQUIBB COMPANY-15101173

PATIENT
  Age: 3 Year
  Sex: Female
  Weight: 8 kg

DRUGS (4)
  1. WARFARIN SODIUM [Suspect]
     Indication: ANTICOAGULANT THERAPY
     Route: 048
     Dates: start: 20100326, end: 20100326
  2. LOVENOX [Suspect]
     Indication: THROMBOSIS PROPHYLAXIS
     Route: 058
     Dates: start: 20100325, end: 20100326
  3. BOSENTAN [Concomitant]
     Indication: PULMONARY HYPERTENSION
     Dates: start: 20100325
  4. VIAGRA [Concomitant]
     Indication: PULMONARY HYPERTENSION
     Dates: start: 20100325

REACTIONS (2)
  - GASTROINTESTINAL HAEMORRHAGE [None]
  - PLATELET COUNT DECREASED [None]
